FAERS Safety Report 6957746-0 (Version None)
Quarter: 2010Q3

REPORT INFORMATION
  Report Type: 
  Country: None (occurrence: None)
  Receive Date: 20100831
  Receipt Date: 20100823
  Transmission Date: 20110219
  Serious: Yes (Other)
  Sender: FDA-Public Use
  Company Number: US-AMGEN-QUU433456

PATIENT
  Sex: Female

DRUGS (1)
  1. ENBREL [Suspect]
     Indication: ANKYLOSING SPONDYLITIS
     Route: 058
     Dates: start: 20050101

REACTIONS (8)
  - ANKYLOSING SPONDYLITIS [None]
  - COLITIS ULCERATIVE [None]
  - COUGH [None]
  - DIABETES MELLITUS [None]
  - FEELING COLD [None]
  - HOT FLUSH [None]
  - INFECTION [None]
  - PULMONARY OEDEMA [None]
